FAERS Safety Report 9217968 (Version 1)
Quarter: 2013Q2

REPORT INFORMATION
  Report Type: Spontaneous
  Country: US (occurrence: US)
  Receive Date: 20130408
  Receipt Date: 20130408
  Transmission Date: 20140414
  Serious: Yes (Hospitalization, Other)
  Sender: FDA-Public Use
  Company Number: PHEH2012US016912

PATIENT
  Age: 56 Year
  Sex: Male
  Weight: 131.52 kg

DRUGS (6)
  1. GLEEVEC [Suspect]
     Dosage: 400 MG, EVERY DAY
     Route: 048
  2. GLEEVEC [Suspect]
     Dosage: UNK UKN, UNK
  3. PRAVASTATIN [Concomitant]
     Dosage: UNK UKN, UNK
  4. BENAZEPRIL HYDROCHLORIDE [Concomitant]
     Dosage: UNK UKN, UNK
  5. ALLOPURINOL [Concomitant]
     Dosage: UNK UKN, UNK
  6. FERROUS SULFATE [Concomitant]
     Dosage: UNK UKN, UNK

REACTIONS (3)
  - Pneumonia [Unknown]
  - Cellulitis [Unknown]
  - Impaired healing [Unknown]
